FAERS Safety Report 26044197 (Version 1)
Quarter: 2025Q4

REPORT INFORMATION
  Report Type: Spontaneous
  Country: US (occurrence: US)
  Receive Date: 20251114
  Receipt Date: 20251114
  Transmission Date: 20260118
  Serious: No
  Sender: DR REDDYS
  Company Number: US-DRL-USA-USA/2025/11/016630

PATIENT

DRUGS (1)
  1. OMEPRAZOLE/SODIIUM BICARBONATE [Suspect]
     Active Substance: OMEPRAZOLE\SODIUM BICARBONATE
     Indication: Dyspepsia
     Dosage: 20 MG/1,680 MG
     Route: 048

REACTIONS (2)
  - Drug ineffective [Unknown]
  - Product use complaint [Unknown]
